FAERS Safety Report 12229565 (Version 1)
Quarter: 2016Q2

REPORT INFORMATION
  Report Type: Spontaneous
  Country: FR (occurrence: FR)
  Receive Date: 20160401
  Receipt Date: 20160401
  Transmission Date: 20160815
  Serious: Yes (Hospitalization, Other)
  Sender: FDA-Public Use
  Company Number: FR-GLAXOSMITHKLINE-FR2016GSK037971

PATIENT
  Age: 62 Year
  Sex: Male

DRUGS (6)
  1. SILODYX [Concomitant]
     Active Substance: SILODOSIN
     Indication: PRODUCT USED FOR UNKNOWN INDICATION
     Dosage: 8 MG, UNK
     Route: 065
  2. IMUREL [Suspect]
     Active Substance: AZATHIOPRINE SODIUM
     Dosage: 250 MG, UNK
     Route: 048
     Dates: start: 201511, end: 20160122
  3. REMICADE [Suspect]
     Active Substance: INFLIXIMAB
     Indication: ENTEROCOLITIS HAEMORRHAGIC
     Dosage: UNK
     Route: 042
     Dates: start: 20160114, end: 20160114
  4. LEXOMIL [Concomitant]
     Active Substance: BROMAZEPAM
     Indication: PRODUCT USED FOR UNKNOWN INDICATION
     Dosage: 6 MG, Z (1/4, 1/4, 1/2)
  5. ZELITREX [Suspect]
     Active Substance: VALACYCLOVIR HYDROCHLORIDE
     Indication: HERPES ZOSTER
     Dosage: 500 MG, UNK
     Route: 048
     Dates: start: 2015, end: 20160122
  6. IMUREL [Suspect]
     Active Substance: AZATHIOPRINE SODIUM
     Indication: ENTEROCOLITIS HAEMORRHAGIC
     Dosage: 150 MG, UNK
     Route: 048
     Dates: start: 201508

REACTIONS (1)
  - Pancytopenia [Not Recovered/Not Resolved]

NARRATIVE: CASE EVENT DATE: 20160122
